FAERS Safety Report 10571204 (Version 4)
Quarter: 2015Q1

REPORT INFORMATION
  Report Type: Spontaneous
  Country: JP (occurrence: JP)
  Receive Date: 20141107
  Receipt Date: 20150126
  Transmission Date: 20150720
  Serious: Yes (Life-Threatening, Hospitalization)
  Sender: FDA-Public Use
  Company Number: JP-ELI_LILLY_AND_COMPANY-JP201410001414

PATIENT
  Age: 67 Year
  Sex: Male

DRUGS (5)
  1. FOLIC ACID. [Concomitant]
     Active Substance: FOLIC ACID
  2. VITAMIN B12 [Concomitant]
     Active Substance: CYANOCOBALAMIN
  3. AVASTIN [Suspect]
     Active Substance: BEVACIZUMAB
     Indication: LUNG ADENOCARCINOMA STAGE III
     Dosage: UNK
     Route: 042
     Dates: start: 20140930, end: 20141003
  4. CISPLATIN. [Concomitant]
     Active Substance: CISPLATIN
     Indication: LUNG ADENOCARCINOMA STAGE III
     Dosage: UNK
     Route: 042
     Dates: start: 20140930, end: 20141003
  5. ALIMTA [Suspect]
     Active Substance: PEMETREXED DISODIUM
     Indication: LUNG ADENOCARCINOMA STAGE III
     Dosage: UNK
     Route: 042
     Dates: start: 20140930, end: 20141003

REACTIONS (2)
  - Disseminated intravascular coagulation [Recovering/Resolving]
  - Gallbladder perforation [Not Recovered/Not Resolved]

NARRATIVE: CASE EVENT DATE: 20141003
